FAERS Safety Report 19182132 (Version 6)
Quarter: 2021Q2

REPORT INFORMATION
  Report Type: Report from Study
  Country: KR (occurrence: KR)
  Receive Date: 20210427
  Receipt Date: 20210527
  Transmission Date: 20210717
  Serious: Yes (Hospitalization)
  Sender: FDA-Public Use
  Company Number: KR-CELLTRION INC.-2021KR005462

PATIENT

DRUGS (18)
  1. LASIX [Concomitant]
     Active Substance: FUROSEMIDE
     Indication: OEDEMA
     Dosage: 10 MG
     Route: 042
     Dates: start: 20210416, end: 20210416
  2. HERZUMA [Suspect]
     Active Substance: TRASTUZUMAB-PKRB
     Dosage: 2 MG/KG
     Dates: start: 20210330
  3. GENEXOL [PACLITAXEL] [Suspect]
     Active Substance: PACLITAXEL
     Dosage: 80 MG/M2
     Route: 042
     Dates: start: 20210406
  4. PENIRAMIN [Concomitant]
     Indication: NAUSEA
     Dosage: 4 MG
     Route: 042
     Dates: start: 20210416, end: 20210416
  5. HERZUMA [Suspect]
     Active Substance: TRASTUZUMAB-PKRB
     Dosage: 104 MG (2 MG/KG = 104 MG) (+ NS 250 CC) DAY 1 + DAY 8 + DAY 15 + DAY 22
  6. CYRAMZA [Suspect]
     Active Substance: RAMUCIRUMAB
     Indication: HER2 POSITIVE GASTRIC CANCER
     Dosage: 8 MG/KG, CYCLIC
     Route: 042
     Dates: start: 20210302, end: 20210316
  7. GENEXOL [PACLITAXEL] [Suspect]
     Active Substance: PACLITAXEL
     Indication: METASTATIC GASTRIC CANCER
     Dosage: 80 MG/M2
     Route: 042
     Dates: start: 20210330, end: 20210406
  8. HERZUMA [Suspect]
     Active Substance: TRASTUZUMAB-PKRB
     Dosage: 2 MG/KG
     Dates: start: 20210420
  9. CYRAMZA [Suspect]
     Active Substance: RAMUCIRUMAB
     Dosage: 417 MG (8MG/KG = 417MG ) (+NS 250 CC) DAY 1 + DAY 15
  10. GENEXOL [PACLITAXEL] [Suspect]
     Active Substance: PACLITAXEL
     Dosage: 125 MG (80 MG/ M2 = 125 MG) (+NS 250 CC) DAY 1 + DAY 8 + DAY 15
  11. HERZUMA [Suspect]
     Active Substance: TRASTUZUMAB-PKRB
     Indication: METASTATIC GASTRIC CANCER
     Dosage: 2 MG/KG
     Route: 042
     Dates: start: 20210330, end: 20210406
  12. CYRAMZA [Suspect]
     Active Substance: RAMUCIRUMAB
     Indication: METASTATIC GASTRIC CANCER
     Dosage: 8 MG/KG
     Route: 042
     Dates: start: 20210330, end: 20210330
  13. GENEXOL [PACLITAXEL] [Suspect]
     Active Substance: PACLITAXEL
     Indication: HER2 POSITIVE GASTRIC CANCER
     Dosage: 80 MG/M2, CYCLIC
     Route: 042
     Dates: start: 20210302, end: 20210316
  14. LASIX [Concomitant]
     Active Substance: FUROSEMIDE
     Dosage: 5 MG
     Route: 042
     Dates: start: 20210420, end: 20210420
  15. HERZUMA [Suspect]
     Active Substance: TRASTUZUMAB-PKRB
     Indication: HER2 POSITIVE GASTRIC CANCER
     Dosage: 2 MG/KG
     Route: 042
     Dates: start: 20210302, end: 20210323
  16. HERZUMA [Suspect]
     Active Substance: TRASTUZUMAB-PKRB
     Dosage: 2 MG/KG
     Route: 042
     Dates: start: 20210420, end: 20210420
  17. HERZUMA [Suspect]
     Active Substance: TRASTUZUMAB-PKRB
     Dosage: 2 MG/KG
     Dates: start: 20210406
  18. ALBUMINE [Concomitant]
     Active Substance: ALBUMIN HUMAN
     Indication: BLOOD ALBUMIN
     Dosage: 100 ML
     Route: 042
     Dates: start: 20210416, end: 20210416

REACTIONS (4)
  - Underdose [Unknown]
  - Decreased appetite [Recovered/Resolved]
  - Off label use [Unknown]
  - Asthenia [Recovered/Resolved]

NARRATIVE: CASE EVENT DATE: 20210416
